FAERS Safety Report 4622464-0 (Version None)
Quarter: 2005Q1

REPORT INFORMATION
  Report Type: 
  Country: None (occurrence: None)
  Receive Date: 20050330
  Receipt Date: 20050315
  Transmission Date: 20050727
  Serious: Yes (Other)
  Sender: FDA-Public Use
  Company Number: 200510689EU

PATIENT
  Age: 60 Year
  Sex: Female

DRUGS (4)
  1. KETEK [Suspect]
     Indication: BRONCHOPNEUMONIA
     Route: 048
     Dates: start: 20050218, end: 20050221
  2. CORTICOSTEROIDS [Concomitant]
  3. BECLOMETHASONE DIPROPIONATE [Concomitant]
  4. ALBUTEROL [Concomitant]

REACTIONS (2)
  - HALLUCINATION [None]
  - TREMOR [None]
